FAERS Safety Report 9496412 (Version 1)
Quarter: 2013Q3

REPORT INFORMATION
  Report Type: Spontaneous
  Country: DE (occurrence: DE)
  Receive Date: 20130904
  Receipt Date: 20130904
  Transmission Date: 20140515
  Serious: Yes (Other)
  Sender: FDA-Public Use
  Company Number: DE-EISAI INC-E2007-01294-SPO-DE

PATIENT
  Age: 44 Year
  Sex: Male
  Weight: 60 kg

DRUGS (5)
  1. FYCOMPA (PERAMPANEL) [Suspect]
     Indication: PARTIAL SEIZURES
     Route: 048
     Dates: start: 20130218, end: 20130627
  2. FYCOMPA (PERAMPANEL) [Suspect]
     Route: 048
     Dates: start: 20130628, end: 20130814
  3. FYCOMPA (PERAMPANEL) [Suspect]
     Route: 048
     Dates: start: 20130815
  4. LAMOTRIGIN [Concomitant]
     Indication: PARTIAL SEIZURES
     Dosage: 600 MG DAILY
     Route: 048
     Dates: start: 201104
  5. CLOBAZAM [Concomitant]
     Indication: PARTIAL SEIZURES
     Dosage: 15 MG/DAY
     Route: 048
     Dates: start: 20130628

REACTIONS (1)
  - Psychotic disorder [Unknown]
